FAERS Safety Report 22623248 (Version 1)
Quarter: 2023Q2

REPORT INFORMATION
  Report Type: Spontaneous
  Country: DE (occurrence: None)
  Receive Date: 20230621
  Receipt Date: 20230621
  Transmission Date: 20230722
  Serious: Yes (Other)
  Sender: FDA-Public Use
  Company Number: DE-ROCHE-3369180

PATIENT
  Age: 54 Year
  Sex: Female

DRUGS (1)
  1. OCREVUS [Suspect]
     Active Substance: OCRELIZUMAB
     Indication: Relapsing-remitting multiple sclerosis
     Route: 065
     Dates: start: 202012, end: 202208

REACTIONS (8)
  - Leukopenia [Recovering/Resolving]
  - Agranulocytosis [Recovering/Resolving]
  - Monocyte count increased [Recovering/Resolving]
  - Eosinophil count increased [Recovering/Resolving]
  - Basophil count increased [Recovering/Resolving]
  - T-lymphocyte count decreased [Recovering/Resolving]
  - Urinary tract infection [Unknown]
  - Leukocyturia [Recovering/Resolving]
